FAERS Safety Report 6254920-6 (Version None)
Quarter: 2009Q3

REPORT INFORMATION
  Report Type: 
  Country: None (occurrence: None)
  Receive Date: 20090702
  Receipt Date: 20080818
  Transmission Date: 20100115
  Serious: No
  Sender: FDA-Public Use
  Company Number: A0696053A

PATIENT
  Age: 51 Year
  Sex: Female

DRUGS (9)
  1. PARNATE [Suspect]
     Indication: DEPRESSION
     Dosage: 80MG PER DAY
     Route: 048
     Dates: start: 19880101
  2. HERBAL MEDICATION [Suspect]
     Dates: end: 20071123
  3. HERBAL SLEEPING MEDICATION [Suspect]
     Dosage: 3TAB PER DAY
     Route: 048
     Dates: start: 20080430
  4. VEGETABLE PROTEIN [Suspect]
     Dates: end: 20080421
  5. UNSPECIFIED ANTIBIOTIC AGENT [Suspect]
  6. LAMICTAL [Concomitant]
     Route: 048
  7. VALIUM [Concomitant]
  8. SYNTHROID [Concomitant]
  9. RISPERDAL [Concomitant]

REACTIONS (9)
  - ADVERSE EVENT [None]
  - AGITATION [None]
  - DIZZINESS [None]
  - FATIGUE [None]
  - FEELING ABNORMAL [None]
  - HEADACHE [None]
  - IRRITABILITY [None]
  - MUSCLE SPASMS [None]
  - THYROID DISORDER [None]
